FAERS Safety Report 4296628-2 (Version None)
Quarter: 2004Q1

REPORT INFORMATION
  Report Type: 
  Country: None (occurrence: None)
  Receive Date: 20040126
  Receipt Date: 20031124
  Transmission Date: 20041129
  Serious: Yes (Other)
  Sender: FDA-Public Use
  Company Number: 352745

PATIENT
  Sex: Female

DRUGS (1)
  1. VALCYTE [Suspect]
     Indication: CHRONIC FATIGUE SYNDROME
     Dosage: 900 MG DAILY ORAL
     Route: 048
     Dates: end: 20031015

REACTIONS (1)
  - LIVER FUNCTION TEST ABNORMAL [None]
